FAERS Safety Report 7624050-7 (Version None)
Quarter: 2011Q3

REPORT INFORMATION
  Report Type: 
  Country: None (occurrence: None)
  Receive Date: 20110720
  Receipt Date: 20110707
  Transmission Date: 20111222
  Serious: Yes (Other)
  Sender: FDA-Public Use
  Company Number: PHHY2011CA49464

PATIENT
  Sex: Female

DRUGS (6)
  1. VITAMIN D [Concomitant]
     Dosage: UNK UKN, UNK
  2. ZOLEDRONOC ACID [Suspect]
     Indication: OSTEOPOROSIS
     Dosage: UNK UKN, UNK
     Route: 042
     Dates: start: 20080728
  3. AVALIDE [Concomitant]
     Dosage: UNK UKN, UNK
  4. NORVASC [Concomitant]
     Dosage: 2.5 MG, QD
  5. ACETYLSALICYLIC ACID ENTERIC COATED [Concomitant]
     Dosage: 81 MG, QD
  6. ZOLEDRONOC ACID [Suspect]
     Dosage: UNK UKN, UNK
     Route: 042
     Dates: start: 20100723

REACTIONS (1)
  - RADIUS FRACTURE [None]
